FAERS Safety Report 6939888-9 (Version None)
Quarter: 2010Q3

REPORT INFORMATION
  Report Type: 
  Country: None (occurrence: None)
  Receive Date: 20100825
  Receipt Date: 20100816
  Transmission Date: 20110219
  Serious: Yes (Other)
  Sender: FDA-Public Use
  Company Number: ES-JNJFOC-20100805817

PATIENT
  Age: 82 Year
  Sex: Female

DRUGS (2)
  1. RISPERDAL [Suspect]
     Indication: DEMENTIA
     Route: 048
  2. MEMANTINE [Concomitant]
     Indication: PRODUCT USED FOR UNKNOWN INDICATION

REACTIONS (5)
  - DYSARTHRIA [None]
  - HALLUCINATION [None]
  - NAUSEA [None]
  - TREMOR [None]
  - VOMITING [None]
